FAERS Safety Report 14921767 (Version 1)
Quarter: 2018Q2

REPORT INFORMATION
  Report Type: Spontaneous
  Country: FR (occurrence: FR)
  Receive Date: 20180522
  Receipt Date: 20180522
  Transmission Date: 20180711
  Serious: Yes (Other)
  Sender: FDA-Public Use
  Company Number: FR-MERCK KGAA-2048196

PATIENT
  Age: 36 Year
  Sex: Female

DRUGS (2)
  1. NOVOTHYROX [Suspect]
     Active Substance: LEVOTHYROXINE SODIUM
     Indication: AUTOIMMUNE HYPOTHYROIDISM
     Dates: start: 2017
  2. NOVOTHYROX [Suspect]
     Active Substance: LEVOTHYROXINE SODIUM
     Dates: start: 20170919

REACTIONS (34)
  - Vertigo [None]
  - Mental fatigue [None]
  - Apathy [None]
  - Gait disturbance [None]
  - Mood swings [None]
  - Thyroxine free increased [None]
  - Arthralgia [None]
  - Dizziness [None]
  - Emotional distress [None]
  - Amnesia [None]
  - Fatigue [None]
  - Alopecia [None]
  - Ear pain [None]
  - Impaired driving ability [None]
  - Sensory disturbance [None]
  - Disturbance in attention [None]
  - Dyspnoea exertional [None]
  - Pain [None]
  - Hypokinesia [None]
  - Back pain [None]
  - Chest pain [None]
  - Headache [None]
  - Palpitations [None]
  - Blindness [None]
  - Malaise [None]
  - Hyperacusis [None]
  - Fear of disease [None]
  - Nausea [None]
  - Vomiting [None]
  - Insomnia [None]
  - Abdominal pain upper [None]
  - Blood thyroid stimulating hormone increased [Recovered/Resolved]
  - Hot flush [None]
  - Hypersensitivity [None]

NARRATIVE: CASE EVENT DATE: 201704
